FAERS Safety Report 7784829-8 (Version None)
Quarter: 2011Q3

REPORT INFORMATION
  Report Type: 
  Country: None (occurrence: None)
  Receive Date: 20110928
  Receipt Date: 20110919
  Transmission Date: 20111222
  Serious: Yes (Death)
  Sender: FDA-Public Use
  Company Number: FR-ROCHE-803727

PATIENT
  Sex: Male

DRUGS (12)
  1. SERETIDE [Concomitant]
  2. NEXIUM [Concomitant]
  3. OMIX [Concomitant]
  4. NEXIUM [Concomitant]
  5. AMARYL [Concomitant]
  6. GLUCOPHAGE [Concomitant]
  7. MABTHERA [Suspect]
     Indication: CHRONIC LYMPHOCYTIC LEUKAEMIA
     Dosage: LAST MAINTENANCE DOSE
     Route: 041
     Dates: start: 20100521, end: 20100521
  8. SITAGLIPTIN PHOSPHATE [Concomitant]
  9. PERMIXON [Concomitant]
  10. BISOPROLOL FUMARATE [Concomitant]
  11. FLUDARABINE PHOSPHATE [Suspect]
     Indication: CHRONIC LYMPHOCYTIC LEUKAEMIA
     Route: 065
  12. CYCLOPHOSPHAMIDE [Suspect]
     Indication: CHRONIC LYMPHOCYTIC LEUKAEMIA
     Route: 065

REACTIONS (1)
  - MALIGNANT MELANOMA [None]
